FAERS Safety Report 6547648-6 (Version None)
Quarter: 2010Q1

REPORT INFORMATION
  Report Type: 
  Country: None (occurrence: None)
  Receive Date: 20100123
  Receipt Date: 20100115
  Transmission Date: 20100710
  Serious: Yes (Death)
  Sender: FDA-Public Use
  Company Number: US-JNJFOC-20100106009

PATIENT
  Age: 34 Year
  Sex: Female

DRUGS (6)
  1. ACETAMINOPHEN [Suspect]
     Route: 048
  2. ACETAMINOPHEN [Suspect]
     Indication: DRUG USE FOR UNKNOWN INDICATION
     Route: 048
  3. ETHANOL [Suspect]
     Indication: DRUG USE FOR UNKNOWN INDICATION
     Route: 048
  4. ANTIHISTAMINE [Suspect]
     Indication: DRUG USE FOR UNKNOWN INDICATION
     Route: 048
  5. CITALOPRAM HYDROBROMIDE [Suspect]
     Indication: DRUG USE FOR UNKNOWN INDICATION
  6. ZOPICLONE [Suspect]
     Indication: DRUG USE FOR UNKNOWN INDICATION

REACTIONS (2)
  - COMPLETED SUICIDE [None]
  - DRUG TOXICITY [None]
